FAERS Safety Report 19018666 (Version 5)
Quarter: 2025Q1

REPORT INFORMATION
  Report Type: Spontaneous
  Country: JP (occurrence: JP)
  Receive Date: 20210317
  Receipt Date: 20250324
  Transmission Date: 20250409
  Serious: Yes (Other)
  Sender: ASTELLAS
  Company Number: JP-GILEAD-2021-0520327

PATIENT
  Age: 64 Year
  Sex: Male

DRUGS (33)
  1. AMPHOTERICIN B [Suspect]
     Active Substance: AMPHOTERICIN B
     Indication: Product used for unknown indication
     Dosage: 200 MG, ONCE DAILY
     Route: 042
     Dates: start: 20130409, end: 20130409
  2. MICAFUNGIN SODIUM [Suspect]
     Active Substance: MICAFUNGIN SODIUM
     Indication: Product used for unknown indication
     Route: 042
     Dates: start: 20130410, end: 20130418
  3. PROGRAF [Suspect]
     Active Substance: TACROLIMUS
     Indication: Graft versus host disease
     Dosage: 0.1 MG/KG, ONCE DAILY
     Route: 042
     Dates: start: 20130409, end: 20130409
  4. PROGRAF [Suspect]
     Active Substance: TACROLIMUS
     Indication: Prophylaxis
  5. VFEND [Suspect]
     Active Substance: VORICONAZOLE
     Indication: Product used for unknown indication
     Route: 048
     Dates: start: 20130419, end: 20130517
  6. MEROPENEM [Suspect]
     Active Substance: MEROPENEM
     Indication: Product used for unknown indication
     Dosage: 1 G, BID
     Route: 042
     Dates: start: 20130409
  7. CEFEPIME HYDROCHLORIDE [Suspect]
     Active Substance: CEFEPIME HYDROCHLORIDE
     Indication: Sepsis
     Dosage: 2 G, ONCE DAILY
     Route: 042
     Dates: start: 20130326, end: 20130408
  8. CUBICIN [Suspect]
     Active Substance: DAPTOMYCIN
     Indication: Sepsis
     Route: 042
     Dates: start: 20130409, end: 20130418
  9. CUBICIN [Suspect]
     Active Substance: DAPTOMYCIN
     Route: 042
     Dates: start: 20130419, end: 20130422
  10. OMEPRAZOLE SODIUM [Suspect]
     Active Substance: OMEPRAZOLE SODIUM
     Indication: Prophylaxis
     Route: 042
     Dates: start: 20130409, end: 20130503
  11. JANUVIA [Suspect]
     Active Substance: SITAGLIPTIN PHOSPHATE
     Indication: Product used for unknown indication
     Route: 048
     Dates: start: 20130409, end: 20140424
  12. AMIKACIN SULFATE [Suspect]
     Active Substance: AMIKACIN SULFATE
     Indication: Product used for unknown indication
     Route: 065
     Dates: start: 20130409, end: 20130409
  13. URSO [Suspect]
     Active Substance: URSODIOL
     Indication: Prophylaxis
     Route: 048
     Dates: start: 20130409, end: 20130409
  14. AMMONIUM GLYCYRRHIZATE [Suspect]
     Active Substance: AMMONIUM GLYCYRRHIZATE
     Indication: Product used for unknown indication
     Route: 042
     Dates: start: 20130409, end: 20130509
  15. BARACLUDE [Suspect]
     Active Substance: ENTECAVIR
     Indication: Product used for unknown indication
     Route: 048
     Dates: start: 20130409, end: 20130708
  16. CELLCEPT [Suspect]
     Active Substance: MYCOPHENOLATE MOFETIL
     Indication: Graft versus host disease
     Route: 048
     Dates: start: 20130409, end: 20130518
  17. CELLCEPT [Suspect]
     Active Substance: MYCOPHENOLATE MOFETIL
     Indication: Prophylaxis
  18. TRANSAMIN [Suspect]
     Active Substance: TRANEXAMIC ACID
     Indication: Product used for unknown indication
     Route: 065
     Dates: start: 20130409, end: 20130412
  19. LASIX [Suspect]
     Active Substance: FUROSEMIDE
     Indication: Product used for unknown indication
     Route: 042
     Dates: start: 20130409, end: 20130426
  20. FILGRASTIM [Suspect]
     Active Substance: FILGRASTIM
     Indication: Cytopenia
     Route: 065
     Dates: start: 20130409, end: 20130426
  21. FILGRASTIM [Suspect]
     Active Substance: FILGRASTIM
     Indication: Transplant
  22. SOLU-CORTEF [Suspect]
     Active Substance: HYDROCORTISONE SODIUM SUCCINATE
     Indication: Graft versus host disease
     Route: 065
     Dates: start: 20130410, end: 20130413
  23. SOLU-CORTEF [Suspect]
     Active Substance: HYDROCORTISONE SODIUM SUCCINATE
     Indication: Prophylaxis
  24. ACYCLOVIR [Suspect]
     Active Substance: ACYCLOVIR
     Indication: Prophylaxis
     Route: 042
     Dates: start: 20130410, end: 20130416
  25. MAGNESIUM SULFATE [Suspect]
     Active Substance: MAGNESIUM SULFATE
     Indication: Product used for unknown indication
     Route: 065
     Dates: start: 20130411, end: 20130501
  26. CARPERITIDE [Suspect]
     Active Substance: CARPERITIDE
     Indication: Product used for unknown indication
     Route: 042
     Dates: start: 20130411, end: 20130502
  27. DIGOXIN [Suspect]
     Active Substance: DIGOXIN
     Indication: Atrial fibrillation
     Route: 065
     Dates: start: 20130413, end: 20130413
  28. DIGOXIN [Suspect]
     Active Substance: DIGOXIN
     Indication: Prophylaxis
  29. FOSCAVIR [Suspect]
     Active Substance: FOSCARNET SODIUM
     Indication: Prophylaxis
     Route: 042
     Dates: start: 20130416, end: 20130521
  30. THROMBOMODULIN ALFA [Suspect]
     Active Substance: THROMBOMODULIN ALFA
     Indication: Thrombotic microangiopathy
     Route: 042
     Dates: start: 20130419, end: 20130424
  31. SOLU-MEDROL [Suspect]
     Active Substance: METHYLPREDNISOLONE SODIUM SUCCINATE
     Indication: Graft versus host disease
     Route: 042
     Dates: start: 20130421, end: 20130502
  32. SOLU-MEDROL [Suspect]
     Active Substance: METHYLPREDNISOLONE SODIUM SUCCINATE
     Indication: Prophylaxis
  33. URSODIOL [Suspect]
     Active Substance: URSODIOL
     Indication: Product used for unknown indication
     Route: 065

REACTIONS (8)
  - Cardiac failure acute [Recovering/Resolving]
  - Thrombotic microangiopathy [Recovering/Resolving]
  - Gamma-glutamyltransferase increased [Recovered/Resolved]
  - Blood alkaline phosphatase increased [Recovering/Resolving]
  - Blood creatinine increased [Recovering/Resolving]
  - Weight increased [Recovering/Resolving]
  - Blood urea increased [Recovering/Resolving]
  - Drug ineffective [Unknown]

NARRATIVE: CASE EVENT DATE: 20130411
